FAERS Safety Report 16005175 (Version 6)
Quarter: 2019Q2

REPORT INFORMATION
  Report Type: Spontaneous
  Country: TW (occurrence: TW)
  Receive Date: 20190226
  Receipt Date: 20190517
  Transmission Date: 20190711
  Serious: Yes (Life-Threatening, Hospitalization, Other)
  Sender: FDA-Public Use
  Company Number: TW-SA-2019SA052635

PATIENT
  Age: 69 Year
  Sex: Male

DRUGS (3)
  1. FABRAZYME [Suspect]
     Active Substance: AGALSIDASE BETA
     Dosage: UNK
     Route: 065
     Dates: start: 20190411
  2. FABRAZYME [Suspect]
     Active Substance: AGALSIDASE BETA
     Dosage: 70 MG, QOW
     Route: 041
     Dates: start: 201808, end: 20190411
  3. FABRAZYME [Suspect]
     Active Substance: AGALSIDASE BETA
     Dosage: 70 MG, QOW
     Route: 041
     Dates: start: 201809, end: 20190411

REACTIONS (12)
  - Infection [Not Recovered/Not Resolved]
  - Endotracheal intubation [Not Recovered/Not Resolved]
  - Dyspnoea [Not Recovered/Not Resolved]
  - Pneumonia [Not Recovered/Not Resolved]
  - General physical health deterioration [Unknown]
  - Oedema peripheral [Not Recovered/Not Resolved]
  - Pleural effusion [Not Recovered/Not Resolved]
  - Malaise [Not Recovered/Not Resolved]
  - Decreased appetite [Not Recovered/Not Resolved]
  - Condition aggravated [Not Recovered/Not Resolved]
  - Pyrexia [Not Recovered/Not Resolved]
  - Influenza [Not Recovered/Not Resolved]

NARRATIVE: CASE EVENT DATE: 20190209
